FAERS Safety Report 6453123-X (Version None)
Quarter: 2009Q4

REPORT INFORMATION
  Report Type: 
  Country: None (occurrence: None)
  Receive Date: 20091117
  Receipt Date: 20091102
  Transmission Date: 20100525
  Serious: Yes (Hospitalization, Other)
  Sender: FDA-Public Use
  Company Number: AUR-APL-2009-01173

PATIENT
  Age: 45 Year
  Sex: Male

DRUGS (2)
  1. RIBAVIRIN [Suspect]
     Indication: HEPATITIS C
     Dosage: 400MG BID
  2. PEGINTERFERON-ALPHA-2A [Suspect]
     Indication: HEPATITIS C
     Dosage: 180UG PER WEEK

REACTIONS (10)
  - ABNORMAL BEHAVIOUR [None]
  - AGGRESSION [None]
  - AGITATION [None]
  - DECREASED APPETITE [None]
  - ELEVATED MOOD [None]
  - HEART RATE INCREASED [None]
  - IRRITABILITY [None]
  - MANIA [None]
  - PARANOIA [None]
  - SLEEP DISORDER [None]
